FAERS Safety Report 8561402-5 (Version None)
Quarter: 2012Q3

REPORT INFORMATION
  Report Type: 
  Country: None (occurrence: None)
  Receive Date: 20120802
  Receipt Date: 20120725
  Transmission Date: 20120928
  Serious: Yes (Other)
  Sender: FDA-Public Use
  Company Number: US-GLAXOSMITHKLINE-A0986979A

PATIENT
  Sex: Female

DRUGS (3)
  1. SPIRIVA [Concomitant]
  2. FLUTICASONE PROPIONATE [Suspect]
     Indication: CHRONIC OBSTRUCTIVE PULMONARY DISEASE
     Dosage: 1PUFF PER DAY
     Route: 055
     Dates: start: 20110111, end: 20120701
  3. PROAIR HFA [Concomitant]
     Route: 055

REACTIONS (26)
  - EYE HAEMORRHAGE [None]
  - MUSCLE SPASMS [None]
  - AGEUSIA [None]
  - DYSPNOEA [None]
  - DIARRHOEA [None]
  - DYSURIA [None]
  - DIZZINESS [None]
  - DISTURBANCE IN ATTENTION [None]
  - MEMORY IMPAIRMENT [None]
  - HYPOAESTHESIA [None]
  - SPEECH DISORDER [None]
  - DEAFNESS [None]
  - CEREBROVASCULAR ACCIDENT [None]
  - HEADACHE [None]
  - GAIT DISTURBANCE [None]
  - ASTHMA [None]
  - NAUSEA [None]
  - PAINFUL DEFAECATION [None]
  - VOMITING [None]
  - DISABILITY [None]
  - PNEUMONIA [None]
  - OROPHARYNGEAL PAIN [None]
  - PAIN [None]
  - ANOSMIA [None]
  - ABDOMINAL PAIN [None]
  - ACTIVITIES OF DAILY LIVING IMPAIRED [None]
